FAERS Safety Report 8131553-8 (Version None)
Quarter: 2012Q1

REPORT INFORMATION
  Report Type: 
  Country: None (occurrence: None)
  Receive Date: 20120213
  Receipt Date: 20120203
  Transmission Date: 20120608
  Serious: Yes (Other)
  Sender: FDA-Public Use
  Company Number: AU-JNJFOC-20120203265

PATIENT
  Sex: Female

DRUGS (2)
  1. SIMPONI [Suspect]
     Indication: CROHN'S DISEASE
     Route: 058
     Dates: start: 20110706, end: 20111223
  2. SIMPONI [Suspect]
     Indication: RHEUMATOID ARTHRITIS
     Route: 058
     Dates: start: 20110706, end: 20111223

REACTIONS (3)
  - HERPES ZOSTER [None]
  - COUGH [None]
  - DRUG INEFFECTIVE [None]
